FAERS Safety Report 12495459 (Version 1)
Quarter: 2016Q2

REPORT INFORMATION
  Report Type: Spontaneous
  Country: US (occurrence: None)
  Receive Date: 20160623
  Receipt Date: 20160623
  Transmission Date: 20160815
  Serious: No
  Sender: FDA-Public Use
  Company Number: None

PATIENT
  Age: 40 Year
  Sex: Female

DRUGS (2)
  1. CAPECITABINE TAB 500MG [Suspect]
     Active Substance: CAPECITABINE
     Dosage: 1000MG BID FOR 2 WEE PO
     Route: 048
     Dates: start: 201604
  2. TEMOZOLOMIDE  CAP 140MG [Suspect]
     Active Substance: TEMOZOLOMIDE
     Dosage: 240MG QD FOR 5 DAYS PO
     Route: 048
     Dates: start: 201604

REACTIONS (1)
  - Dysgeusia [None]

NARRATIVE: CASE EVENT DATE: 20160622
